FAERS Safety Report 18629201 (Version 1)
Quarter: 2020Q4

REPORT INFORMATION
  Report Type: Spontaneous
  Country: US (occurrence: US)
  Receive Date: 20201217
  Receipt Date: 20201217
  Transmission Date: 20210114
  Serious: No
  Sender: FDA-Public Use
  Company Number: US-ESPERIONTHERAPEUTICS-2020USA04836

PATIENT
  Age: 60 Year
  Sex: Female

DRUGS (15)
  1. NEXLIZET [Suspect]
     Active Substance: BEMPEDOIC ACID\EZETIMIBE
     Indication: PRODUCT USED FOR UNKNOWN INDICATION
     Dosage: 180/10MG, QD
     Route: 048
     Dates: start: 20201023
  2. DELTASONE [Concomitant]
     Active Substance: PREDNISONE
     Dosage: 20 MILLIGRAM, QD
     Route: 048
  3. VALTREX [Concomitant]
     Active Substance: VALACYCLOVIR HYDROCHLORIDE
     Dosage: 1 GRAM
     Route: 065
  4. ARISTOCORT [TRIAMCINOLONE ACETONIDE] [Concomitant]
     Active Substance: TRIAMCINOLONE ACETONIDE
     Indication: RASH
     Dosage: 0.1 PERCENT, BID PRN
     Route: 061
  5. LUNESTA [Concomitant]
     Active Substance: ESZOPICLONE
     Dosage: 1 MILLIGRAM, BEDTIME
     Route: 048
  6. ATARAX [Concomitant]
     Active Substance: HYDROXYZINE HYDROCHLORIDE
     Indication: PRURITUS
     Dosage: 25 MILLIGRAM, THREE TIMES DAILY AS NEEDED
     Route: 048
  7. LUNESTA [Concomitant]
     Active Substance: ESZOPICLONE
     Dosage: 3 MILLIGRAM
     Route: 065
  8. BACTROBAN [Concomitant]
     Active Substance: MUPIROCIN\MUPIROCIN CALCIUM
     Dosage: 2 PERCENT, APPLY EXTERNALLY ON AFFECTED AREAS, TID
     Route: 061
  9. ADDERALL [Concomitant]
     Active Substance: AMPHETAMINE ASPARTATE\AMPHETAMINE SULFATE\DEXTROAMPHETAMINE SACCHARATE\DEXTROAMPHETAMINE SULFATE
     Dosage: 25 MILLIGRAM, EVERY MORNING, QD
     Route: 048
  10. SINGULAIR [Concomitant]
     Active Substance: MONTELUKAST SODIUM
     Dosage: 10 MILLIGRAM, QD
     Route: 048
  11. PROTONIX [Concomitant]
     Active Substance: PANTOPRAZOLE SODIUM
     Dosage: 20 MILLIGRAM, QD
     Route: 065
  12. COMBIPATCH [Concomitant]
     Active Substance: ESTRADIOL\NORETHINDRONE ACETATE
     Dosage: 0.15-0.14 MG/24HR, 1 PATCH ONTO THE SKIN MONDAY AND THURSDAY AT 9AM
     Route: 061
  13. RINVOQ [Concomitant]
     Active Substance: UPADACITINIB
     Dosage: 15 MILLIGRAM, QD
     Route: 048
  14. OMEGA 3 FISH OIL [FISH OIL] [Concomitant]
     Dosage: 1000 MILLIGRAM, BID
     Route: 048
  15. STRESS FORMULA VITAMINS [Concomitant]
     Indication: VITAMIN SUPPLEMENTATION
     Dosage: 1 DOSAGE FORM, QD
     Route: 048

REACTIONS (1)
  - Rash [Unknown]

NARRATIVE: CASE EVENT DATE: 20201026
